FAERS Safety Report 19788765 (Version 1)
Quarter: 2021Q3

REPORT INFORMATION
  Report Type: Spontaneous
  Country: US (occurrence: US)
  Receive Date: 20210904
  Receipt Date: 20210904
  Transmission Date: 20211014
  Serious: No
  Sender: FDA-Public Use
  Company Number: US-ASTRAZENECA-2021A697695

PATIENT
  Sex: Male
  Weight: 62.6 kg

DRUGS (1)
  1. BEVESPI AEROSPHERE [Suspect]
     Active Substance: FORMOTEROL FUMARATE\GLYCOPYRROLATE
     Indication: CHRONIC OBSTRUCTIVE PULMONARY DISEASE
     Dosage: 1 PUFF OF THE BEVESPI, TWICE DAILY, RATHER THAN 2 PUFFS
     Route: 055

REACTIONS (5)
  - Blister [Not Recovered/Not Resolved]
  - Product use issue [Unknown]
  - Expired product administered [Unknown]
  - Skin exfoliation [Not Recovered/Not Resolved]
  - Dyspnoea [Unknown]
